FAERS Safety Report 20510059 (Version 1)
Quarter: 2022Q1

REPORT INFORMATION
  Report Type: Spontaneous
  Country: US (occurrence: US)
  Receive Date: 20220224
  Receipt Date: 20220224
  Transmission Date: 20220423
  Serious: No
  Sender: FDA-Public Use
  Company Number: US-drreddys-SPO/USA/22/0147025

PATIENT
  Age: 21 Year
  Sex: Male

DRUGS (1)
  1. ZENATANE [Suspect]
     Active Substance: ISOTRETINOIN
     Indication: Product used for unknown indication
     Dosage: RMA ISSUE DATE: 05 JANUARY 2022 11:05:23 AM, 27 NOVEMBER 2021 12:15:59 PM AND 27 NOVEMBER 2021 12:15

REACTIONS (1)
  - Headache [Unknown]
